FAERS Safety Report 9209068 (Version 3)
Quarter: 2013Q4

REPORT INFORMATION
  Report Type: Spontaneous
  Country: US (occurrence: US)
  Receive Date: 20130404
  Receipt Date: 20131213
  Transmission Date: 20140711
  Serious: Yes (Hospitalization)
  Sender: FDA-Public Use
  Company Number: US-BAYER-2013-041471

PATIENT
  Age: 27 Year
  Sex: Female

DRUGS (2)
  1. MIRENA [Suspect]
     Indication: CONTRACEPTION
     Dosage: 20 MCG/24HR, CONT
     Route: 015
     Dates: start: 20081029, end: 20110421
  2. ZOLOFT [Concomitant]
     Indication: ANXIETY

REACTIONS (6)
  - Uterine perforation [None]
  - Device dislocation [None]
  - Abdominal adhesions [None]
  - Emotional distress [None]
  - Injury [None]
  - Pain [None]
